FAERS Safety Report 15804614 (Version 1)
Quarter: 2019Q1

REPORT INFORMATION
  Report Type: Spontaneous
  Country: ES (occurrence: ES)
  Receive Date: 20190109
  Receipt Date: 20190109
  Transmission Date: 20190417
  Serious: Yes (Other)
  Sender: FDA-Public Use
  Company Number: ES-ALLERGAN-1900841US

PATIENT
  Age: 42 Year
  Sex: Male
  Weight: 120 kg

DRUGS (2)
  1. ASENAPINE MALEATE - BP [Suspect]
     Active Substance: ASENAPINE MALEATE
     Indication: ABNORMAL BEHAVIOUR
     Dosage: 5 MG, QAM AT BREAKFAST
     Route: 048
     Dates: start: 20181102, end: 20181123
  2. ASENAPINE MALEATE - BP [Suspect]
     Active Substance: ASENAPINE MALEATE
     Dosage: 10 MG, QPM AT DINNER
     Route: 048
     Dates: start: 20181102, end: 20181123

REACTIONS (1)
  - Dermatitis bullous [Recovered/Resolved]

NARRATIVE: CASE EVENT DATE: 20181105
